FAERS Safety Report 5079717-4 (Version None)
Quarter: 2006Q3

REPORT INFORMATION
  Report Type: 
  Country: None (occurrence: None)
  Receive Date: 20060815
  Receipt Date: 20060814
  Transmission Date: 20061208
  Serious: No
  Sender: FDA-Public Use
  Company Number: US-RB-3711-2006

PATIENT
  Age: 23 Year
  Sex: Male
  Weight: 68.1 kg

DRUGS (2)
  1. BUPRENORPHINE, NALOXONE [Suspect]
     Dosage: TOOK 2MG X 17 TIMES IN THE ONE DAY
     Route: 060
     Dates: start: 20060707, end: 20060707
  2. BUPRENORPHINE, NALOXONE [Interacting]
     Route: 060
     Dates: start: 20060728, end: 20060728

REACTIONS (4)
  - CHILLS [None]
  - DYSPNOEA [None]
  - FORMICATION [None]
  - HYPERHIDROSIS [None]
